FAERS Safety Report 20229007 (Version 4)
Quarter: 2022Q1

REPORT INFORMATION
  Report Type: Report from Study
  Country: US (occurrence: US)
  Receive Date: 20211225
  Receipt Date: 20220321
  Transmission Date: 20220423
  Serious: No
  Sender: FDA-Public Use
  Company Number: US-NOVARTISTESTPH-NVSC2021US295711

PATIENT
  Sex: Female

DRUGS (2)
  1. MAYZENT [Suspect]
     Active Substance: SIPONIMOD
     Indication: Multiple sclerosis
     Dosage: 2 MG, QD
     Route: 048
     Dates: start: 20210907
  2. MAYZENT [Suspect]
     Active Substance: SIPONIMOD
     Dosage: 2 MG/KG, QD
     Route: 048

REACTIONS (2)
  - Osteoarthritis [Unknown]
  - Back pain [Unknown]
